FAERS Safety Report 25652102 (Version 1)
Quarter: 2025Q3

REPORT INFORMATION
  Report Type: Spontaneous
  Country: CN (occurrence: CN)
  Receive Date: 20250806
  Receipt Date: 20250806
  Transmission Date: 20251020
  Serious: Yes (Other)
  Sender: MERCK SHARP & DOHME LLC
  Company Number: CN-009507513-2315611

PATIENT
  Age: 58 Year
  Sex: Male
  Weight: 60 kg

DRUGS (4)
  1. STEGLATRO [Suspect]
     Active Substance: ERTUGLIFLOZIN PIDOLATE
     Indication: Diabetes mellitus
     Dosage: 5 MG, ONCE DAILY
     Route: 048
     Dates: start: 20250716, end: 20250718
  2. CLOPIDOGREL BISULFATE [Suspect]
     Active Substance: CLOPIDOGREL BISULFATE
  3. METFORMIN [Concomitant]
     Active Substance: METFORMIN HYDROCHLORIDE
     Indication: Diabetes mellitus
  4. ACARBOSE [Concomitant]
     Active Substance: ACARBOSE
     Indication: Diabetes mellitus

REACTIONS (12)
  - Hydronephrosis [Unknown]
  - Renal cyst [Unknown]
  - Glucose urine present [Unknown]
  - Weight decreased [Unknown]
  - Nephrolithiasis [Unknown]
  - Hydroureter [Unknown]
  - Ureterolithiasis [Unknown]
  - Haematuria [Recovering/Resolving]
  - Hepatic cyst [Unknown]
  - Blood urine present [Unknown]
  - Urinary tract infection [Recovering/Resolving]
  - Red blood cells urine positive [Unknown]

NARRATIVE: CASE EVENT DATE: 20250701
